FAERS Safety Report 10659538 (Version 1)
Quarter: 2014Q4

REPORT INFORMATION
  Report Type: Spontaneous
  Country: US (occurrence: None)
  Receive Date: 20141216
  Receipt Date: 20141216
  Transmission Date: 20150529
  Serious: Yes (Disabling)
  Sender: FDA-Public Use
  Company Number: None

PATIENT
  Age: 27 Year
  Sex: Female
  Weight: 70.76 kg

DRUGS (1)
  1. SEROQUEL [Suspect]
     Active Substance: QUETIAPINE FUMARATE
     Indication: BIPOLAR II DISORDER
     Dosage: DATE OF USE: 2-3 MONTHS BY ITSELF, 1 PILL, AT BEDTIME, TAKEN BY MOUTH
     Route: 048

REACTIONS (6)
  - Blood glucose abnormal [None]
  - Loss of consciousness [None]
  - Abasia [None]
  - Tardive dyskinesia [None]
  - Crying [None]
  - Excessive eye blinking [None]

NARRATIVE: CASE EVENT DATE: 20141215
